FAERS Safety Report 20707381 (Version 1)
Quarter: 2022Q2

REPORT INFORMATION
  Report Type: Spontaneous
  Country: US (occurrence: US)
  Receive Date: 20220413
  Receipt Date: 20220413
  Transmission Date: 20220721
  Serious: No
  Sender: FDA-Public Use
  Company Number: US-TAKEDA-2022TUS024356

PATIENT

DRUGS (1)
  1. VYVANSE [Suspect]
     Active Substance: LISDEXAMFETAMINE DIMESYLATE
     Indication: Attention deficit hyperactivity disorder
     Dosage: 40 MILLIGRAM
     Route: 065

REACTIONS (12)
  - Lip discolouration [Unknown]
  - Feeling hot [Unknown]
  - Movement disorder [Unknown]
  - Feeling cold [Unknown]
  - Feeling abnormal [Unknown]
  - Asthenia [Unknown]
  - Abdominal discomfort [Unknown]
  - Nausea [Unknown]
  - Hyperhidrosis [Unknown]
  - Palpitations [Unknown]
  - Euphoric mood [Unknown]
  - Decreased appetite [Unknown]
